FAERS Safety Report 5333521-8 (Version None)
Quarter: 2007Q2

REPORT INFORMATION
  Report Type: 
  Country: None (occurrence: None)
  Receive Date: 20070308
  Receipt Date: 20061228
  Transmission Date: 20071010
  Serious: No
  Sender: FDA-Public Use
  Company Number: 2006-BP-13453BP

PATIENT
  Sex: Female
  Weight: 60.78 kg

DRUGS (9)
  1. SPIRIVA [Suspect]
     Indication: BRONCHITIS CHRONIC
     Dosage: SEE IMAGE
     Route: 055
     Dates: start: 20060612, end: 20060913
  2. SPIRIVA [Suspect]
     Indication: CHRONIC OBSTRUCTIVE PULMONARY DISEASE
     Dosage: SEE IMAGE
     Route: 055
     Dates: start: 20060612, end: 20060913
  3. ALBUTEROL [Concomitant]
  4. ZYRTEC [Concomitant]
  5. PLAVIX [Concomitant]
  6. METOPROLOL TARTRATE [Concomitant]
  7. ADVAIR DISKUS 100/50 [Concomitant]
  8. LIPITOR [Concomitant]
  9. FOSAMAX [Concomitant]

REACTIONS (2)
  - LIP SWELLING [None]
  - OEDEMA MOUTH [None]
